FAERS Safety Report 11020696 (Version 2)
Quarter: 2015Q2

REPORT INFORMATION
  Report Type: Report from Study
  Country: IT (occurrence: IT)
  Receive Date: 20150413
  Receipt Date: 20150425
  Transmission Date: 20150821
  Serious: Yes (Hospitalization)
  Sender: FDA-Public Use
  Company Number: IT-ACCORD-029949

PATIENT
  Age: 92 Year
  Sex: Female

DRUGS (5)
  1. NITRODERM [Concomitant]
     Active Substance: NITROGLYCERIN
     Dosage: STRENGTH: 5 MG/DIE
     Route: 062
  2. PANTORC [Concomitant]
     Active Substance: PANTOPRAZOLE SODIUM
     Indication: GASTRITIS
     Dosage: STRENGTH: 20 MG
     Route: 048
  3. LASIX [Concomitant]
     Active Substance: FUROSEMIDE
     Indication: CHRONIC KIDNEY DISEASE
     Dosage: STRENGTH: 25 MG
     Route: 048
  4. GLIMEPIRIDE. [Suspect]
     Active Substance: GLIMEPIRIDE
     Indication: TYPE 2 DIABETES MELLITUS
     Route: 048
  5. ENOXAPARIN [Concomitant]
     Active Substance: ENOXAPARIN
     Route: 058

REACTIONS (4)
  - Confusional state [Recovered/Resolved]
  - Medication error [Unknown]
  - Sopor [Recovered/Resolved]
  - Hypoglycaemia [Recovered/Resolved]

NARRATIVE: CASE EVENT DATE: 20120225
